FAERS Safety Report 23587892 (Version 1)
Quarter: 2024Q1

REPORT INFORMATION
  Report Type: Other
  Country: AU (occurrence: AU)
  Receive Date: 20240301
  Receipt Date: 20240301
  Transmission Date: 20240410
  Serious: Yes (Hospitalization, Other)
  Sender: FDA-Public Use
  Company Number: AU-WT-2024-37349276

PATIENT
  Age: 20 Year
  Sex: Male

DRUGS (4)
  1. THIOGUANINE [Suspect]
     Active Substance: THIOGUANINE
     Indication: Crohn^s disease
     Dosage: 40 MG, QD
  2. THIOGUANINE [Suspect]
     Active Substance: THIOGUANINE
     Indication: Pancreatitis
     Dosage: 40 MG, QD
  3. INFLIXIMAB [Concomitant]
     Active Substance: INFLIXIMAB
  4. METHOTREXATE [Concomitant]
     Active Substance: METHOTREXATE

REACTIONS (4)
  - Myelosuppression [Unknown]
  - Pancytopenia [Unknown]
  - Febrile neutropenia [Unknown]
  - Infection [Unknown]
